FAERS Safety Report 6085440-X (Version None)
Quarter: 2009Q1

REPORT INFORMATION
  Report Type: 
  Country: None (occurrence: None)
  Receive Date: 20090217
  Receipt Date: 20090128
  Transmission Date: 20090719
  Serious: Yes (Other)
  Sender: FDA-Public Use
  Company Number: B0558347A

PATIENT
  Sex: 0

DRUGS (5)
  1. CHLORAMBUCIL (FORMULATION UNKNOWN) (GENERIC) (CHLORAMBUCIL) [Suspect]
     Indication: MANTLE CELL LYMPHOMA
  2. BORTEZOMIB (FORMULATION UNKNOWN) (BORTEZOMIB) [Suspect]
     Indication: MANTLE CELL LYMPHOMA
  3. DOXORUBICIN HYDROCHLORIDE [Suspect]
     Indication: MANTLE CELL LYMPHOMA
  4. DEXAMETHASONE [Suspect]
     Indication: MANTLE CELL LYMPHOMA
  5. RITUXAN [Suspect]
     Indication: MANTLE CELL LYMPHOMA

REACTIONS (1)
  - CARDIOTOXICITY [None]
